FAERS Safety Report 6304655-6 (Version None)
Quarter: 2009Q3

REPORT INFORMATION
  Report Type: 
  Country: None (occurrence: None)
  Receive Date: 20090806
  Receipt Date: 20090726
  Transmission Date: 20100115
  Serious: Yes (Death, Other)
  Sender: FDA-Public Use
  Company Number: CERZ-1000785

PATIENT
  Age: 15 Year
  Sex: Male

DRUGS (1)
  1. CEREZYME [Suspect]
     Indication: GAUCHER'S DISEASE
     Dosage: 60 U/KG, Q2W, INTRAVENOUS
     Route: 042
     Dates: start: 19980319

REACTIONS (4)
  - CONVULSION [None]
  - HEART VALVE CALCIFICATION [None]
  - NERVOUS SYSTEM DISORDER [None]
  - OCULOMOTOR STUDY ABNORMAL [None]
